FAERS Safety Report 19042324 (Version 1)
Quarter: 2021Q1

REPORT INFORMATION
  Report Type: Report from Study
  Country: US (occurrence: US)
  Receive Date: 20210322
  Receipt Date: 20210322
  Transmission Date: 20210420
  Serious: Yes (Hospitalization)
  Sender: FDA-Public Use
  Company Number: US-OTSUKA-2021_008947

PATIENT
  Sex: Male

DRUGS (1)
  1. ASTX727 [Suspect]
     Active Substance: CEDAZURIDINE\DECITABINE
     Indication: MYELODYSPLASTIC SYNDROME
     Dosage: 135 MG (35 MG DECITABINE AND 100 MG CEDAZURIDINE), QD FOR 5 DAYS, THEN 23 DAYS OFF
     Route: 048

REACTIONS (1)
  - Transfusion [Not Recovered/Not Resolved]
